FAERS Safety Report 7536187 (Version 6)
Quarter: 2015Q1

REPORT INFORMATION
  Report Type: Spontaneous
  Country: US (occurrence: US)
  Receive Date: 20100811
  Receipt Date: 20150303
  Transmission Date: 20150721
  Serious: Yes (Hospitalization, Disabling)
  Sender: FDA-Public Use
  Company Number: US-BAYER-201030051NA

PATIENT
  Age: 46 Year
  Sex: Female
  Weight: 76 kg

DRUGS (6)
  1. YAZ [Suspect]
     Active Substance: DROSPIRENONE\ETHINYL ESTRADIOL
     Indication: MENSTRUAL CYCLE MANAGEMENT
     Dosage: UNK
     Route: 048
     Dates: start: 200406, end: 200411
  2. YASMIN [Suspect]
     Active Substance: DROSPIRENONE\ETHINYL ESTRADIOL
     Indication: MENSTRUAL CYCLE MANAGEMENT
     Dosage: UNK
     Route: 048
     Dates: start: 200406, end: 200411
  3. KLONOPIN [Concomitant]
     Active Substance: CLONAZEPAM
  4. YAZ [Suspect]
     Active Substance: DROSPIRENONE\ETHINYL ESTRADIOL
     Indication: CONTRACEPTION
  5. YASMIN [Suspect]
     Active Substance: DROSPIRENONE\ETHINYL ESTRADIOL
     Indication: CONTRACEPTION
  6. ZOCOR [Concomitant]
     Active Substance: SIMVASTATIN
     Indication: BLOOD CHOLESTEROL INCREASED
     Dosage: UNK
     Dates: start: 2004

REACTIONS (12)
  - Hemiparesis [Unknown]
  - Dysarthria [Unknown]
  - Pollakiuria [Not Recovered/Not Resolved]
  - Depression [Not Recovered/Not Resolved]
  - Lacunar infarction [Unknown]
  - Hypoaesthesia [Unknown]
  - Muscular weakness [Not Recovered/Not Resolved]
  - Gait disturbance [Unknown]
  - Micturition urgency [Not Recovered/Not Resolved]
  - Hyperlipidaemia [Not Recovered/Not Resolved]
  - Headache [Unknown]
  - Activities of daily living impaired [None]

NARRATIVE: CASE EVENT DATE: 20041126
